FAERS Safety Report 21858847 (Version 1)
Quarter: 2023Q1

REPORT INFORMATION
  Report Type: Spontaneous
  Country: CN (occurrence: CN)
  Receive Date: 20230113
  Receipt Date: 20230113
  Transmission Date: 20230417
  Serious: Yes (Hospitalization, Other)
  Sender: FDA-Public Use
  Company Number: CN-SA-SAC20230103000889

PATIENT
  Age: 34 Year
  Sex: Male
  Weight: 70 kg

DRUGS (2)
  1. ZOLPIDEM TARTRATE [Suspect]
     Active Substance: ZOLPIDEM TARTRATE
     Indication: Insomnia
     Dosage: 6 DF, QD
     Route: 048
     Dates: start: 20220801, end: 20220807
  2. ESTAZOLAM [Suspect]
     Active Substance: ESTAZOLAM
     Indication: Insomnia
     Dosage: 6 DF, QD
     Route: 048
     Dates: start: 20220801, end: 20220807

REACTIONS (9)
  - Gait disturbance [Recovering/Resolving]
  - Unresponsive to stimuli [Recovering/Resolving]
  - Disorganised speech [Recovering/Resolving]
  - Dysphoria [Recovering/Resolving]
  - Irritability [Recovering/Resolving]
  - Anger [Recovering/Resolving]
  - Impulsive behaviour [Recovering/Resolving]
  - Aggression [Recovering/Resolving]
  - Drug abuse [Recovering/Resolving]

NARRATIVE: CASE EVENT DATE: 20220807
